FAERS Safety Report 9242405 (Version 2)
Quarter: 2013Q2

REPORT INFORMATION
  Report Type: Spontaneous
  Country: US (occurrence: US)
  Receive Date: 20130419
  Receipt Date: 20130424
  Transmission Date: 20140414
  Serious: No
  Sender: FDA-Public Use
  Company Number: US-PFIZER INC-2013120241

PATIENT
  Age: 37 Year
  Sex: Female
  Weight: 48.5 kg

DRUGS (5)
  1. DEPO-PROVERA [Suspect]
     Indication: DYSMENORRHOEA
     Dosage: UNK
     Dates: start: 20130213
  2. ZYRTEC-D [Concomitant]
     Indication: HYPERSENSITIVITY
     Dosage: UNK, AS NEEDED
  3. FLONASE [Concomitant]
     Dosage: UNK, AS NEEDED
  4. TIZANIDINE [Concomitant]
     Dosage: UNK
  5. PERCOCET [Concomitant]
     Dosage: UNK

REACTIONS (6)
  - Menorrhagia [Not Recovered/Not Resolved]
  - Back pain [Not Recovered/Not Resolved]
  - Muscle spasms [Not Recovered/Not Resolved]
  - Muscle strain [Not Recovered/Not Resolved]
  - Off label use [Unknown]
  - Drug ineffective for unapproved indication [Not Recovered/Not Resolved]
